FAERS Safety Report 9948392 (Version 1)
Quarter: 2014Q1

REPORT INFORMATION
  Report Type: Report from Study
  Country: US (occurrence: US)
  Receive Date: 20140303
  Receipt Date: 20140303
  Transmission Date: 20141002
  Serious: No
  Sender: FDA-Public Use
  Company Number: US-ABBVIE-13P-163-1059239-00

PATIENT
  Age: 50 Year
  Sex: Male

DRUGS (12)
  1. HUMIRA [Suspect]
     Indication: RHEUMATOID ARTHRITIS
     Dates: start: 200908
  2. ZANTAC [Concomitant]
     Indication: GASTRITIS
  3. VICODIN [Concomitant]
     Indication: PAIN
     Dosage: 7.5/500MG-2 TABLETS IN THE AM
  4. MULTI-VITAMIN [Concomitant]
     Indication: PRODUCT USED FOR UNKNOWN INDICATION
     Dosage: DAILY
  5. FLOMAX [Concomitant]
     Indication: DYSURIA
  6. TRAMADOL [Concomitant]
     Indication: PAIN
  7. REMERON [Concomitant]
     Indication: INSOMNIA
     Dosage: 7.5MG AT BEDTIME
  8. REMERON [Concomitant]
     Indication: ANXIETY
  9. REMERON [Concomitant]
     Indication: NEURALGIA
  10. KLONOPIN [Concomitant]
     Indication: NEURALGIA
     Dosage: 1MG AT BEDTIME
  11. CARAFATE [Concomitant]
     Indication: GASTRITIS
     Dosage: 1GM AT BEDTIME
  12. CELEBREX [Concomitant]
     Indication: PRODUCT USED FOR UNKNOWN INDICATION
     Dosage: AS NEEDED EVER OTHER DAY

REACTIONS (3)
  - Pyrexia [Not Recovered/Not Resolved]
  - Oropharyngeal pain [Not Recovered/Not Resolved]
  - Malaise [Not Recovered/Not Resolved]
